FAERS Safety Report 26022593 (Version 1)
Quarter: 2025Q4

REPORT INFORMATION
  Report Type: Spontaneous
  Country: US (occurrence: None)
  Receive Date: 20251110
  Receipt Date: 20251110
  Transmission Date: 20260117
  Serious: Yes (Hospitalization)
  Sender: FDA-CTU
  Company Number: None

PATIENT
  Sex: Female

DRUGS (1)
  1. IMKELDI [Suspect]
     Active Substance: IMATINIB
     Indication: Congenital great vessel anomaly
     Dosage: GIVE 1.?ML (139MG) BY MOUTH ONCE DAILY. DISCARD ANY REMAINING AMOUNT AFTER 30 DAYS OF  OPENING
     Route: 048
     Dates: start: 20250605

REACTIONS (1)
  - Hospitalisation [None]
